FAERS Safety Report 10399371 (Version 1)
Quarter: 2014Q3

REPORT INFORMATION
  Report Type: Spontaneous
  Country: US (occurrence: None)
  Receive Date: 20140818
  Receipt Date: 20140818
  Transmission Date: 20150326
  Serious: Yes (Other)
  Sender: FDA-Public Use
  Company Number: None

PATIENT
  Age: 65 Year
  Sex: Female
  Weight: 97.52 kg

DRUGS (3)
  1. GABAPENTIN. [Suspect]
     Active Substance: GABAPENTIN
     Indication: BACK PAIN
     Dosage: ONE OR TWO CAPSULES?AT BEDTIME ?TAKEN BY MOUTH?
     Route: 048
     Dates: start: 20120719
  2. GABAPENTIN. [Suspect]
     Active Substance: GABAPENTIN
     Indication: SCIATICA
     Dosage: ONE OR TWO CAPSULES?AT BEDTIME ?TAKEN BY MOUTH?
     Route: 048
     Dates: start: 20120719
  3. GABAPENTIN. [Suspect]
     Active Substance: GABAPENTIN
     Indication: PAIN IN EXTREMITY
     Dosage: ONE OR TWO CAPSULES?AT BEDTIME ?TAKEN BY MOUTH?
     Route: 048
     Dates: start: 20120719

REACTIONS (4)
  - Abnormal dreams [None]
  - Respiratory rate decreased [None]
  - Dyspnoea [None]
  - Middle insomnia [None]

NARRATIVE: CASE EVENT DATE: 20120719
